FAERS Safety Report 4626417-8 (Version None)
Quarter: 2005Q1

REPORT INFORMATION
  Report Type: 
  Country: None (occurrence: None)
  Receive Date: 20050330
  Receipt Date: 20050314
  Transmission Date: 20050727
  Serious: Yes (Hospitalization, Other)
  Sender: FDA-Public Use
  Company Number: USA050393102

PATIENT
  Age: 56 Year
  Sex: Male
  Weight: 116 kg

DRUGS (3)
  1. HUMALOG [Suspect]
     Indication: DIABETES MELLITUS
     Dates: start: 20020101
  2. HUMULIN 70/30 [Suspect]
     Indication: DIABETES MELLITUS
     Dosage: 75 U/2 DAY
     Dates: start: 19930101, end: 20020101
  3. LANTUS [Concomitant]

REACTIONS (14)
  - BACK PAIN [None]
  - BLOOD GLUCOSE DECREASED [None]
  - BLOOD GLUCOSE INCREASED [None]
  - DYSURIA [None]
  - MEDICAL DEVICE COMPLICATION [None]
  - MEDICATION ERROR [None]
  - NOCTURIA [None]
  - PHARMACEUTICAL PRODUCT COMPLAINT [None]
  - PROSTATE CANCER [None]
  - RENAL FUNCTION TEST ABNORMAL [None]
  - TREATMENT NONCOMPLIANCE [None]
  - WEIGHT DECREASED [None]
  - WEIGHT INCREASED [None]
  - WEIGHT LOSS DIET [None]
